APPROVED DRUG PRODUCT: IMODIUM MULTI-SYMPTOM RELIEF
Active Ingredient: LOPERAMIDE HYDROCHLORIDE; SIMETHICONE
Strength: 2MG;125MG
Dosage Form/Route: TABLET, CHEWABLE;ORAL
Application: N020606 | Product #001
Applicant: JOHNSON AND JOHNSON CONSUMER INC MCNEIL CONSUMER HEALTHCARE DIV
Approved: Jun 26, 1996 | RLD: Yes | RS: No | Type: DISCN